FAERS Safety Report 5402437-0 (Version None)
Quarter: 2007Q3

REPORT INFORMATION
  Report Type: 
  Country: None (occurrence: None)
  Receive Date: 20070801
  Receipt Date: 20060815
  Transmission Date: 20080115
  Serious: No
  Sender: FDA-Public Use
  Company Number: A0597524A

PATIENT
  Age: 57 Year
  Sex: Female

DRUGS (4)
  1. IMITREX [Suspect]
     Indication: MIGRAINE
     Dosage: 50MG AS REQUIRED
     Route: 048
  2. IMITREX [Suspect]
     Dosage: 1INJ AS REQUIRED
     Route: 058
     Dates: start: 20030101
  3. VYTORIN [Concomitant]
  4. ASPIRIN [Concomitant]

REACTIONS (3)
  - DRUG INEFFECTIVE [None]
  - EXPIRED DRUG ADMINISTERED [None]
  - PHARMACEUTICAL PRODUCT COMPLAINT [None]
